FAERS Safety Report 7431887-6 (Version None)
Quarter: 2011Q2

REPORT INFORMATION
  Report Type: 
  Country: None (occurrence: None)
  Receive Date: 20110422
  Receipt Date: 20110415
  Transmission Date: 20111010
  Serious: Yes (Hospitalization, Other)
  Sender: FDA-Public Use
  Company Number: US-JNJFOC-20100808890

PATIENT
  Sex: Male

DRUGS (5)
  1. CIPROFLOXACIN [Suspect]
     Indication: EAR INFECTION
     Route: 065
  2. CIPROFLOXACIN [Suspect]
     Indication: RESPIRATORY TRACT INFECTION
     Route: 065
  3. LEVAQUIN [Suspect]
     Indication: RESPIRATORY DISORDER
     Route: 048
  4. LEVAQUIN [Suspect]
     Indication: PNEUMONIA
     Route: 042
  5. CIPROFLOXACIN [Suspect]
     Indication: SINUSITIS
     Route: 065

REACTIONS (3)
  - ROTATOR CUFF SYNDROME [None]
  - TENDONITIS [None]
  - EPICONDYLITIS [None]
